FAERS Safety Report 5529461-1 (Version None)
Quarter: 2007Q4

REPORT INFORMATION
  Report Type: 
  Country: None (occurrence: None)
  Receive Date: 20071129
  Receipt Date: 20071119
  Transmission Date: 20080405
  Serious: Yes (Other)
  Sender: FDA-Public Use
  Company Number: GB-ABBOTT-07P-167-0418791-00

PATIENT
  Sex: Male
  Weight: 106 kg

DRUGS (6)
  1. HUMIRA [Suspect]
     Indication: ANKYLOSING SPONDYLITIS
     Route: 058
     Dates: start: 20070601
  2. CODEINE SUL TAB [Concomitant]
     Indication: PAIN
     Route: 048
     Dates: start: 20060707
  3. SENNA ALEXANDRINA [Concomitant]
     Indication: CONSTIPATION
     Route: 048
     Dates: start: 20060707
  4. AMITRIPTYL [Concomitant]
     Indication: PAIN
     Route: 048
     Dates: start: 20060719, end: 20070312
  5. PARACETAMOL [Concomitant]
     Indication: DRUG USE FOR UNKNOWN INDICATION
     Route: 048
  6. ALBUTEROL [Concomitant]
     Indication: WHEEZING
     Route: 048
     Dates: start: 20061123

REACTIONS (3)
  - DYSPNOEA [None]
  - LOWER RESPIRATORY TRACT INFECTION [None]
  - RECTAL HAEMORRHAGE [None]
